FAERS Safety Report 9541418 (Version 1)
Quarter: 2013Q3

REPORT INFORMATION
  Report Type: Spontaneous
  Country: US (occurrence: None)
  Receive Date: 20130919
  Receipt Date: 20130919
  Transmission Date: 20140515
  Serious: Yes (Other)
  Sender: FDA-Public Use
  Company Number: None

PATIENT
  Age: 0 Day
  Sex: Male
  Weight: 133.81 kg

DRUGS (1)
  1. LAMOTRIGINE [Suspect]
     Indication: BIPOLAR DISORDER
     Dosage: 300 MG DAILY HS PO 047
     Route: 048
     Dates: start: 20130612, end: 20130912

REACTIONS (4)
  - Acne [None]
  - Disturbance in attention [None]
  - Anxiety [None]
  - Drug ineffective [None]
